FAERS Safety Report 11197503 (Version 1)
Quarter: 2015Q2

REPORT INFORMATION
  Report Type: Report from Study
  Country: US (occurrence: US)
  Receive Date: 20150617
  Receipt Date: 20150617
  Transmission Date: 20150821
  Serious: Yes (Hospitalization, Other)
  Sender: FDA-Public Use
  Company Number: US-TAKEDA-2015MPI003913

PATIENT
  Age: 56 Year
  Sex: Female
  Weight: 85.9 kg

DRUGS (3)
  1. SORAFENIB TOSYLATE [Suspect]
     Active Substance: SORAFENIB TOSYLATE
     Indication: ACUTE MYELOID LEUKAEMIA
     Dosage: 400 MG, BID
     Route: 048
     Dates: start: 20150504, end: 20150609
  2. DECITABINE. [Suspect]
     Active Substance: DECITABINE
     Indication: ACUTE MYELOID LEUKAEMIA
     Dosage: 20 MG/M2, QD
     Route: 042
     Dates: start: 20150504, end: 20150606
  3. VELCADE [Suspect]
     Active Substance: BORTEZOMIB
     Indication: ACUTE MYELOID LEUKAEMIA
     Dosage: 1.3 MG/M2, UNK
     Route: 058
     Dates: start: 20150504, end: 20150606

REACTIONS (2)
  - Intracranial haematoma [Recovered/Resolved with Sequelae]
  - Fall [Recovered/Resolved with Sequelae]

NARRATIVE: CASE EVENT DATE: 20150609
